FAERS Safety Report 7083410-6 (Version None)
Quarter: 2010Q4

REPORT INFORMATION
  Report Type: 
  Country: None (occurrence: None)
  Receive Date: 20101104
  Receipt Date: 20101029
  Transmission Date: 20110411
  Serious: Yes (Hospitalization)
  Sender: FDA-Public Use
  Company Number: A0885712A

PATIENT

DRUGS (4)
  1. EPIVIR [Suspect]
     Route: 048
  2. ZOFRAN [Suspect]
     Route: 065
  3. CLONAZEPAM [Concomitant]
  4. ZOLOFT [Concomitant]

REACTIONS (3)
  - DRUG INEFFECTIVE [None]
  - NAUSEA [None]
  - VOMITING [None]
